FAERS Safety Report 5056789-4 (Version None)
Quarter: 2006Q2

REPORT INFORMATION
  Report Type: 
  Country: None (occurrence: None)
  Receive Date: 20060619
  Receipt Date: 20051003
  Transmission Date: 20061013
  Serious: Yes (Other)
  Sender: FDA-Public Use
  Company Number: US-2005-017403

PATIENT
  Age: 52 Year
  Sex: Male
  Weight: 87.1 kg

DRUGS (5)
  1. FLUDARA [Suspect]
     Indication: NON-HODGKIN'S LYMPHOMA
     Dosage: 25 MG/M2, CYCLE X 5D, INTRAVENOUS
     Route: 042
     Dates: start: 20050412, end: 20050903
  2. RITUXAN [Concomitant]
  3. NEULASTA [Concomitant]
  4. VALTREX (VALCICLOVIR HYDROCHLORIDE) [Concomitant]
  5. SEPTRA [Concomitant]

REACTIONS (3)
  - ALANINE AMINOTRANSFERASE INCREASED [None]
  - ASPARTATE AMINOTRANSFERASE INCREASED [None]
  - GAMMA-GLUTAMYLTRANSFERASE INCREASED [None]
